FAERS Safety Report 16173967 (Version 3)
Quarter: 2019Q2

REPORT INFORMATION
  Report Type: Report from Study
  Country: JP (occurrence: JP)
  Receive Date: 20190409
  Receipt Date: 20190425
  Transmission Date: 20190711
  Serious: Yes (Hospitalization)
  Sender: FDA-Public Use
  Company Number: JP-ROCHE-2101435

PATIENT
  Age: 7 Year
  Sex: Male
  Weight: 29.9 kg

DRUGS (7)
  1. BAKTAR [Concomitant]
     Active Substance: SULFAMETHOXAZOLE\TRIMETHOPRIM
     Indication: INFECTION PROPHYLAXIS
     Dosage: THREE TIMES A WEEK
     Route: 048
     Dates: start: 20180302
  2. MEIACT [Concomitant]
     Active Substance: CEFDITOREN PIVOXIL
     Dosage: DIVIDED INTO 3 DOSES
     Route: 065
  3. ONON [Concomitant]
     Active Substance: PRANLUKAST
     Route: 048
     Dates: start: 20150225
  4. RITUXIMAB. [Suspect]
     Active Substance: RITUXIMAB
     Indication: NEPHROTIC SYNDROME
     Dosage: DOSAGE IS UNCERTAIN, 4 TIMES
     Route: 041
     Dates: start: 20180301
  5. L-CARBOCYSTEINE [Concomitant]
     Active Substance: CARBOCYSTEINE
     Route: 048
     Dates: start: 20150225
  6. BLINDED MYCOPHENOLATE MOFETIL [Suspect]
     Active Substance: MYCOPHENOLATE MOFETIL
     Indication: NEPHROTIC SYNDROME
     Route: 048
     Dates: start: 20180404
  7. KLARICID [CLARITHROMYCIN] [Concomitant]
     Indication: SINUSITIS
     Route: 048
     Dates: start: 20190326, end: 20190401

REACTIONS (2)
  - Influenza [Recovered/Resolved]
  - Lymphadenitis [Recovering/Resolving]

NARRATIVE: CASE EVENT DATE: 20180322
